FAERS Safety Report 9084628 (Version 2)
Quarter: 2013Q1

REPORT INFORMATION
  Report Type: Spontaneous
  Country: DE (occurrence: DE)
  Receive Date: 20130130
  Receipt Date: 20130313
  Transmission Date: 20140127
  Serious: Yes (Hospitalization, Disabling)
  Sender: FDA-Public Use
  Company Number: DE-ELI_LILLY_AND_COMPANY-DE201301007997

PATIENT
  Age: 71 Year
  Sex: Female
  Weight: 54 kg

DRUGS (2)
  1. GEMZAR [Suspect]
     Indication: NON-SMALL CELL LUNG CANCER
     Dosage: 1400 MG, UNK
     Route: 042
  2. NAVELBINE [Concomitant]
     Indication: NON-SMALL CELL LUNG CANCER
     Dosage: 40 MG, UNK

REACTIONS (4)
  - Convulsion [Not Recovered/Not Resolved]
  - Hemiparesis [Not Recovered/Not Resolved]
  - Cerebrovascular accident [Not Recovered/Not Resolved]
  - Off label use [Recovered/Resolved]
